FAERS Safety Report 9415312 (Version 1)
Quarter: 2013Q3

REPORT INFORMATION
  Report Type: Spontaneous
  Country: JP (occurrence: JP)
  Receive Date: 20130723
  Receipt Date: 20130723
  Transmission Date: 20140515
  Serious: Yes (Hospitalization, Other)
  Sender: FDA-Public Use
  Company Number: JP-CUBIST PHARMACEUTICAL, INC.-2013CBST000635

PATIENT
  Sex: 0

DRUGS (1)
  1. CUBICIN [Suspect]
     Indication: STAPHYLOCOCCAL INFECTION
     Dosage: 6 MG/KG, ONCE DAILY
     Route: 041
     Dates: start: 20130706, end: 20130706

REACTIONS (1)
  - Convulsion [Recovered/Resolved]
